FAERS Safety Report 9694405 (Version 1)
Quarter: 2013Q4

REPORT INFORMATION
  Report Type: Spontaneous
  Country: US (occurrence: US)
  Receive Date: 20131118
  Receipt Date: 20131118
  Transmission Date: 20140711
  Serious: No
  Sender: FDA-Public Use
  Company Number: US-009507513-1311USA006362

PATIENT
  Age: 32 Year
  Sex: Female

DRUGS (1)
  1. DULERA [Suspect]
     Dosage: 220/5 UG; 2 PUFFS TWICE DAILY
     Route: 055
     Dates: start: 201309

REACTIONS (3)
  - Drug dose omission [Unknown]
  - Product quality issue [Unknown]
  - No adverse event [Unknown]
